FAERS Safety Report 25001776 (Version 1)
Quarter: 2025Q1

REPORT INFORMATION
  Report Type: Spontaneous
  Country: JP (occurrence: JP)
  Receive Date: 20250224
  Receipt Date: 20250224
  Transmission Date: 20250409
  Serious: Yes (Hospitalization)
  Sender: JOHNSON AND JOHNSON
  Company Number: JP-JNJFOC-20250167263

PATIENT
  Age: 76 Year
  Sex: Female
  Weight: 57.0 kg

DRUGS (5)
  1. TREMFYA [Suspect]
     Active Substance: GUSELKUMAB
     Indication: Palmoplantar pustulosis
     Dosage: WEEK0
     Route: 058
     Dates: start: 20200909, end: 20200909
  2. TREMFYA [Suspect]
     Active Substance: GUSELKUMAB
     Dosage: WEEK4
     Route: 058
     Dates: start: 20201007, end: 20201007
  3. TREMFYA [Suspect]
     Active Substance: GUSELKUMAB
  4. NIFEDIPINE [Concomitant]
     Active Substance: NIFEDIPINE
     Indication: Product used for unknown indication
     Route: 048
  5. VALSARTAN [Concomitant]
     Active Substance: VALSARTAN
     Indication: Product used for unknown indication
     Route: 048

REACTIONS (1)
  - Dermatitis contact [Recovered/Resolved]

NARRATIVE: CASE EVENT DATE: 20201007
